FAERS Safety Report 9924819 (Version 1)
Quarter: 2014Q1

REPORT INFORMATION
  Report Type: Spontaneous
  Country: US (occurrence: None)
  Receive Date: 20140224
  Receipt Date: 20140224
  Transmission Date: 20141002
  Serious: Yes (Disabling)
  Sender: FDA-Public Use
  Company Number: None

PATIENT
  Age: 52 Year
  Sex: Female
  Weight: 81.65 kg

DRUGS (1)
  1. NEXIUM [Suspect]
     Indication: DYSPEPSIA
     Dosage: 1 PILL ONCE DAILY
     Route: 048

REACTIONS (12)
  - Diarrhoea [None]
  - Flatulence [None]
  - Abdominal pain [None]
  - Product substitution issue [None]
  - Headache [None]
  - Dyspnoea [None]
  - Muscular weakness [None]
  - Arthralgia [None]
  - Contusion [None]
  - Vision blurred [None]
  - Yellow skin [None]
  - Anaemia [None]
